FAERS Safety Report 8513089-5 (Version None)
Quarter: 2012Q3

REPORT INFORMATION
  Report Type: 
  Country: None (occurrence: None)
  Receive Date: 20120716
  Receipt Date: 20120713
  Transmission Date: 20120928
  Serious: Yes (Other)
  Sender: FDA-Public Use
  Company Number: US-PFIZER INC-2012169671

PATIENT
  Sex: Female

DRUGS (2)
  1. OXYGEN [Concomitant]
     Dosage: UNK
  2. LIPITOR [Suspect]
     Dosage: UNK

REACTIONS (3)
  - CARDIAC DISORDER [None]
  - COLON CANCER [None]
  - APPARENT DEATH [None]
